FAERS Safety Report 9918933 (Version 2)
Quarter: 2014Q3

REPORT INFORMATION
  Report Type: Spontaneous
  Country: US (occurrence: US)
  Receive Date: 20140224
  Receipt Date: 20140904
  Transmission Date: 20150326
  Serious: No
  Sender: FDA-Public Use
  Company Number: US-PFIZER INC-2014049189

PATIENT
  Age: 63 Year
  Sex: Male

DRUGS (2)
  1. INLYTA [Suspect]
     Active Substance: AXITINIB
     Indication: RENAL CANCER
     Dosage: 5 MG, 2X/DAY
  2. INLYTA [Suspect]
     Active Substance: AXITINIB
     Dosage: 7 MG, TWICE DAILY (ONE 5MG TABLET ALONG WITH TWO 1MG TABLETS,  TWICE DAILY)
     Dates: start: 20140115

REACTIONS (6)
  - Cough [Unknown]
  - Dry mouth [Unknown]
  - Infection [Unknown]
  - Diarrhoea [Unknown]
  - Throat irritation [Unknown]
  - Speech disorder [Unknown]
